FAERS Safety Report 15783720 (Version 4)
Quarter: 2019Q1

REPORT INFORMATION
  Report Type: Spontaneous
  Country: US (occurrence: US)
  Receive Date: 20190102
  Receipt Date: 20190122
  Transmission Date: 20190417
  Serious: Yes (Death, Other)
  Sender: FDA-Public Use
  Company Number: US-PFIZER INC-2018534540

PATIENT
  Age: 39 Year
  Sex: Female

DRUGS (1)
  1. THROMBIN [Suspect]
     Active Substance: THROMBIN
     Dosage: UNK
     Route: 061

REACTIONS (3)
  - Multiple organ dysfunction syndrome [Fatal]
  - Peritoneal haemorrhage [Unknown]
  - Coagulation factor decreased [Unknown]
